FAERS Safety Report 4294113-5 (Version None)
Quarter: 2004Q1

REPORT INFORMATION
  Report Type: 
  Country: None (occurrence: None)
  Receive Date: 20040212
  Receipt Date: 20040203
  Transmission Date: 20041129
  Serious: Yes (Hospitalization)
  Sender: FDA-Public Use
  Company Number: FLUV00304000326

PATIENT
  Age: 50 Year
  Sex: Female

DRUGS (6)
  1. FLUVOXAMINE MALEATE [Suspect]
     Indication: DEPRESSION
     Dosage: 100 MG QD PO
     Route: 048
  2. PREVISCAN 20 MG (FLUIDIONE) [Suspect]
     Indication: CEREBROVASCULAR DISORDER
     Dosage: 20 MG DAILY PO
     Route: 048
     Dates: start: 19990809, end: 19990815
  3. PREVISCAN 20 MG (FLUIDIONE) [Suspect]
     Indication: CEREBROVASCULAR DISORDER
     Dosage: 20 MG DAILY PO
     Route: 048
     Dates: start: 19990101, end: 20000211
  4. TEGRETOL [Suspect]
     Indication: DEPRESSION
     Dosage: 200 MG BID PO
     Route: 048
  5. IMOVANE (ZOPICLONE) [Concomitant]
  6. TRANXENE [Concomitant]

REACTIONS (2)
  - DRUG INTERACTION [None]
  - PROTHROMBIN TIME SHORTENED [None]
